FAERS Safety Report 12799222 (Version 1)
Quarter: 2016Q3

REPORT INFORMATION
  Report Type: Spontaneous
  Country: CO (occurrence: CO)
  Receive Date: 20160930
  Receipt Date: 20160930
  Transmission Date: 20161109
  Serious: Yes (Death, Life-Threatening, Hospitalization)
  Sender: FDA-Public Use
  Company Number: CO-009507513-1609COL012287

PATIENT
  Age: 37 Year
  Sex: Female

DRUGS (1)
  1. ISENTRESS [Suspect]
     Active Substance: RALTEGRAVIR POTASSIUM
     Indication: HIV INFECTION
     Dosage: 400 MG, Q12H
     Route: 048
     Dates: start: 201608

REACTIONS (1)
  - Adverse event [Fatal]

NARRATIVE: CASE EVENT DATE: 2016
